FAERS Safety Report 5980146-7 (Version None)
Quarter: 2008Q4

REPORT INFORMATION
  Report Type: 
  Country: None (occurrence: None)
  Receive Date: 20081202
  Receipt Date: 20081202
  Transmission Date: 20090506
  Serious: Yes (Other)
  Sender: FDA-Public Use
  Company Number: None

PATIENT
  Age: 13 Year
  Sex: Male
  Weight: 63.5036 kg

DRUGS (1)
  1. ABILIFY [Suspect]
     Indication: ATTENTION DEFICIT/HYPERACTIVITY DISORDER
     Dosage: 1 PER DAY PO
     Route: 048
     Dates: start: 20060415, end: 20080919

REACTIONS (5)
  - ABNORMAL BEHAVIOUR [None]
  - DYSKINESIA [None]
  - HALLUCINATIONS, MIXED [None]
  - MANIA [None]
  - VOMITING [None]
